FAERS Safety Report 5505043-2 (Version None)
Quarter: 2007Q4

REPORT INFORMATION
  Report Type: 
  Country: None (occurrence: None)
  Receive Date: 20071102
  Receipt Date: 20071029
  Transmission Date: 20080405
  Serious: Yes (Hospitalization)
  Sender: FDA-Public Use
  Company Number: US-ROCHE-519992

PATIENT
  Age: 93 Year
  Sex: Female

DRUGS (11)
  1. BONIVA [Suspect]
     Indication: OSTEOPOROSIS
     Route: 042
     Dates: start: 20070201, end: 20070201
  2. LASIX [Concomitant]
     Dates: end: 20070601
  3. LASIX [Concomitant]
     Dates: start: 20070601
  4. IMDUR [Concomitant]
     Dates: end: 20070301
  5. IMDUR [Concomitant]
     Dates: start: 20070301, end: 20070601
  6. ALDACTONE [Concomitant]
     Dates: end: 20070601
  7. NEXIUM [Concomitant]
  8. ARIMIDEX [Concomitant]
  9. LEVOTHYROXINE SODIUM [Concomitant]
  10. ASPIRIN [Concomitant]
     Dates: end: 20070301
  11. ADVAIR DISKUS 100/50 [Concomitant]

REACTIONS (3)
  - CELLULITIS [None]
  - CHEST PAIN [None]
  - MYALGIA [None]
